FAERS Safety Report 10210496 (Version 1)
Quarter: 2014Q2

REPORT INFORMATION
  Report Type: Spontaneous
  Country: US (occurrence: US)
  Receive Date: 20140602
  Receipt Date: 20140602
  Transmission Date: 20141212
  Serious: Yes (Other)
  Sender: FDA-Public Use
  Company Number: US-ACTAVIS-2014-11067

PATIENT
  Age: 59 Year
  Sex: Female
  Weight: 59 kg

DRUGS (5)
  1. FENTANYL-100 (WATSON LABORATORIES) [Suspect]
     Indication: FIBROMYALGIA
     Dosage: 1 PATCH Q 72 HOURS
     Route: 062
     Dates: start: 2012
  2. FLEXERIL                           /00428402/ [Concomitant]
     Indication: FIBROMYALGIA
     Dosage: 10 MG, DAILY
     Route: 048
  3. ZOFRAN                             /00955301/ [Concomitant]
     Indication: NAUSEA
     Dosage: 4 MG, PRN
     Route: 048
  4. NORCO [Concomitant]
     Indication: BREAKTHROUGH PAIN
     Dosage: 325/750 MG PRN
     Route: 048
  5. IMITREX                            /01044801/ [Concomitant]
     Indication: HEADACHE
     Dosage: 100 MG, PRN
     Route: 048

REACTIONS (5)
  - Dyskinesia [Recovering/Resolving]
  - Drug ineffective [Not Recovered/Not Resolved]
  - Crying [Recovering/Resolving]
  - Intentional product misuse [Unknown]
  - Application site dryness [Unknown]
